FAERS Safety Report 5782973-8 (Version None)
Quarter: 2008Q2

REPORT INFORMATION
  Report Type: 
  Country: None (occurrence: None)
  Receive Date: 20080624
  Receipt Date: 20080619
  Transmission Date: 20081010
  Serious: Yes (Life-Threatening, Hospitalization)
  Sender: FDA-Public Use
  Company Number: FR-AVENTIS-200812992EU

PATIENT
  Age: 96 Year
  Sex: Female

DRUGS (8)
  1. FLUDEX                             /00340101/ [Suspect]
     Indication: HYPERTENSION
     Route: 048
     Dates: start: 20070501, end: 20080424
  2. LODOZ [Suspect]
     Indication: HYPERTENSION
     Dosage: DOSE: 1 DF
     Route: 048
     Dates: start: 20070501, end: 20080424
  3. BURINEX [Suspect]
     Indication: HYPERTENSION
     Route: 048
     Dates: start: 20070701, end: 20080424
  4. NEURONTIN [Concomitant]
  5. POTASSIUM CHLORIDE [Concomitant]
  6. PLAVIX [Concomitant]
  7. ALLOPURINOL [Concomitant]
  8. NORMISON [Concomitant]

REACTIONS (4)
  - ATRIOVENTRICULAR BLOCK COMPLETE [None]
  - BLOOD CREATININE INCREASED [None]
  - BRADYCARDIA [None]
  - HYPOTENSION [None]
